FAERS Safety Report 21421223 (Version 1)
Quarter: 2022Q4

REPORT INFORMATION
  Report Type: Report from Study
  Country: US (occurrence: US)
  Receive Date: 20221007
  Receipt Date: 20221007
  Transmission Date: 20230113
  Serious: Yes (Hospitalization, Other)
  Sender: FDA-Public Use
  Company Number: US-UCBSA-2022057780

PATIENT
  Sex: Female

DRUGS (3)
  1. CERTOLIZUMAB PEGOL [Suspect]
     Active Substance: CERTOLIZUMAB PEGOL
     Indication: Rheumatoid arthritis
     Dosage: 400 MILLIGRAM, EV 4 WEEKS
  2. AZATHIOPRINE [Concomitant]
     Active Substance: AZATHIOPRINE
     Indication: Product used for unknown indication
     Dosage: 150 MILLIGRAM, ONCE DAILY (QD)
  3. PREDNISONE [Concomitant]
     Active Substance: PREDNISONE
     Indication: Product used for unknown indication
     Dosage: 10 MILLIGRAM, ONCE DAILY (QD)

REACTIONS (16)
  - Rheumatoid arthritis [Unknown]
  - Polychondritis [Unknown]
  - Musculoskeletal stiffness [Unknown]
  - Tongue ulceration [Unknown]
  - Gingival ulceration [Unknown]
  - Rash [Unknown]
  - Erythema of eyelid [Unknown]
  - Exfoliative rash [Recovered/Resolved]
  - Lymphadenopathy [Unknown]
  - Temperature intolerance [Unknown]
  - Dry eye [Unknown]
  - Vision blurred [Unknown]
  - Weight decreased [Unknown]
  - Constipation [Unknown]
  - Cartilage injury [Unknown]
  - Maternal exposure during pregnancy [Unknown]

NARRATIVE: CASE EVENT DATE: 20210101
